FAERS Safety Report 10346935 (Version 1)
Quarter: 2014Q3

REPORT INFORMATION
  Report Type: Spontaneous
  Country: US (occurrence: None)
  Receive Date: 20140725
  Receipt Date: 20140725
  Transmission Date: 20150326
  Serious: Yes (Other)
  Sender: FDA-Public Use
  Company Number: None

PATIENT
  Age: 35 Year
  Sex: Female
  Weight: 76.2 kg

DRUGS (4)
  1. TYSABRI [Concomitant]
     Active Substance: NATALIZUMAB
  2. ADVIL [Concomitant]
     Active Substance: IBUPROFEN
  3. GABAPENTIN. [Suspect]
     Active Substance: GABAPENTIN
     Indication: PAIN
     Dosage: 1  THREE TIMES DAILY  TAKEN BY MOUTH
     Route: 048
     Dates: start: 20140601, end: 20140714
  4. BACLOFEN. [Concomitant]
     Active Substance: BACLOFEN

REACTIONS (2)
  - Depression [None]
  - Drug withdrawal syndrome [None]

NARRATIVE: CASE EVENT DATE: 20140714
